FAERS Safety Report 6200273-9 (Version None)
Quarter: 2009Q2

REPORT INFORMATION
  Report Type: 
  Country: None (occurrence: None)
  Receive Date: 20090522
  Receipt Date: 20090514
  Transmission Date: 20091009
  Serious: Yes (Hospitalization)
  Sender: FDA-Public Use
  Company Number: CA-JNJFOC-20090503796

PATIENT
  Age: 59 Year
  Sex: Female

DRUGS (21)
  1. REMICADE [Suspect]
     Indication: CROHN'S DISEASE
     Route: 042
  2. NOVOLIN GE NPH [Concomitant]
     Dosage: 24 UNITS IN AM; 50/55 UNITS AT BEDTIME
     Route: 050
  3. NOVORAPID [Concomitant]
     Dosage: 17 UNITS AT BREAKFAST, 19 UNITS AT LUNCH, 22 UNITS AT DINNER
     Route: 050
  4. METFORMIN HCL [Concomitant]
  5. PREDNISONE [Concomitant]
     Dosage: 10-20 MG TAKE AS DIRECTED
  6. HYDROCHLOROTHIAZIDE [Concomitant]
  7. VERAPAMIL HYDROCHLORIDE SR [Concomitant]
     Dosage: IN MORNING
  8. ENALAPRIL MALEATE [Concomitant]
  9. LIPITOR [Concomitant]
  10. FENTANYL [Concomitant]
     Indication: PAIN
     Dosage: BI-WEEKLY
  11. OXYCET [Concomitant]
     Dosage: 1 EVERY 4 HOURS AS NEEDED
  12. APO-AMITRIPTYLINE [Concomitant]
     Dosage: 1 TABLET EVERY MORNING, 3 TABLETS AT BEDTIME
  13. ACTONEL [Concomitant]
  14. ASCORBIC ACID [Concomitant]
  15. MULTI-VITAMINS [Concomitant]
  16. ASPIRIN [Concomitant]
  17. OMEGA FISH OILS [Concomitant]
     Dosage: 1 TABLET
  18. CALCIUM [Concomitant]
  19. MAGNESIUM SULFATE [Concomitant]
  20. VITAMIN D [Concomitant]
     Dosage: 1 TABLET DAILY
  21. FERROUS SULFATE TAB [Concomitant]
     Dosage: 1 TABLET

REACTIONS (3)
  - ARRHYTHMIA [None]
  - PNEUMONIA [None]
  - POLYCHONDRITIS [None]
